FAERS Safety Report 5535289-9 (Version None)
Quarter: 2007Q4

REPORT INFORMATION
  Report Type: 
  Country: None (occurrence: None)
  Receive Date: 20071204
  Receipt Date: 20071204
  Transmission Date: 20080405
  Serious: Yes (Life-Threatening)
  Sender: FDA-Public Use
  Company Number: None

PATIENT
  Age: 51 Year
  Sex: Female
  Weight: 113.3993 kg

DRUGS (2)
  1. PROAIR HFA [Suspect]
     Indication: HYPERSENSITIVITY
     Dosage: 2 INHALATIONS Q 5 MINUTES PRN INHAL
     Route: 055
     Dates: start: 20071024, end: 20071024
  2. PROAIR HFA [Suspect]
     Indication: RESPIRATORY DISTRESS
     Dosage: 2 INHALATIONS Q 5 MINUTES PRN INHAL
     Route: 055
     Dates: start: 20071024, end: 20071024

REACTIONS (2)
  - DRUG INEFFECTIVE [None]
  - RESPIRATORY DISTRESS [None]
